FAERS Safety Report 17233386 (Version 1)
Quarter: 2020Q1

REPORT INFORMATION
  Report Type: Spontaneous
  Country: GB (occurrence: GB)
  Receive Date: 20200104
  Receipt Date: 20200104
  Transmission Date: 20200409
  Serious: Yes (Other)
  Sender: FDA-Public Use
  Company Number: GB-ABBVIE-20P-167-3218784-00

PATIENT
  Age: 74 Year
  Sex: Male
  Weight: 79 kg

DRUGS (1)
  1. LUPRON DEPOT [Suspect]
     Active Substance: LEUPROLIDE ACETATE
     Indication: PRODUCT USED FOR UNKNOWN INDICATION
     Dosage: 11.25 MILLIGRAM
     Route: 065
     Dates: end: 20191210

REACTIONS (2)
  - Abscess [Recovering/Resolving]
  - Localised infection [Recovering/Resolving]

NARRATIVE: CASE EVENT DATE: 20191102
